FAERS Safety Report 12884611 (Version 6)
Quarter: 2023Q2

REPORT INFORMATION
  Report Type: Spontaneous
  Country: US (occurrence: US)
  Receive Date: 20161026
  Receipt Date: 20230420
  Transmission Date: 20230721
  Serious: No
  Sender: FDA-Public Use
  Company Number: US-PFIZER INC-2016491718

PATIENT
  Age: 76 Year
  Sex: Female
  Weight: 95.3 kg

DRUGS (2)
  1. ARTHROTEC [Suspect]
     Active Substance: DICLOFENAC SODIUM\MISOPROSTOL
     Indication: Arthritis
     Dosage: UNK
     Dates: start: 2000
  2. ARTHROTEC [Suspect]
     Active Substance: DICLOFENAC SODIUM\MISOPROSTOL
     Indication: Inflammation
     Dosage: 75 MG, 2X/DAY

REACTIONS (8)
  - Drug ineffective [Unknown]
  - Fatigue [Unknown]
  - Illness [Recovering/Resolving]
  - Infection [Unknown]
  - Confusional state [Unknown]
  - Speech disorder [Unknown]
  - Intentional product use issue [Unknown]
  - Intentional product misuse [Unknown]
